FAERS Safety Report 19472604 (Version 2)
Quarter: 2021Q3

REPORT INFORMATION
  Report Type: Spontaneous
  Country: PT (occurrence: PT)
  Receive Date: 20210629
  Receipt Date: 20210703
  Transmission Date: 20211014
  Serious: Yes (Other)
  Sender: FDA-Public Use
  Company Number: PT-ACCORD-229924

PATIENT
  Age: 58 Year
  Sex: Female
  Weight: 62 kg

DRUGS (3)
  1. ONDANSETRON [Concomitant]
     Active Substance: ONDANSETRON
  2. DEXAMETHASONE. [Concomitant]
     Active Substance: DEXAMETHASONE
  3. OXALIPLATIN ACCORD [Suspect]
     Active Substance: OXALIPLATIN
     Indication: COLON CANCER
     Dosage: 215.8MG OF 21/21 DAYS
     Route: 042
     Dates: start: 20210409

REACTIONS (3)
  - Paraesthesia [Recovered/Resolved]
  - Tremor [Recovered/Resolved]
  - Dysarthria [Recovered/Resolved]

NARRATIVE: CASE EVENT DATE: 20210430
